FAERS Safety Report 8519080 (Version 2)
Quarter: 2012Q4

REPORT INFORMATION
  Report Type: 
  Country: US (occurrence: US)
  Receive Date: 20120418
  Receipt Date: 20121105
  Transmission Date: 20130627
  Serious: Yes (Other)
  Sender: FDA-Public Use
  Company Number: US-US-EMD SERONO, INC.-7125321

PATIENT
  Sex: Female

DRUGS (1)
  1. REBIF [Suspect]
     Indication: RELAPSING-REMITTING MULTIPLE SCLEROSIS
     Route: 058
     Dates: start: 20070709, end: 20120123

REACTIONS (5)
  - Carotid artery aneurysm [Not Recovered/Not Resolved]
  - Muscular weakness [Unknown]
  - Nuclear magnetic resonance imaging brain abnormal [Unknown]
  - Neutralising antibodies positive [Unknown]
  - Gait disturbance [Not Recovered/Not Resolved]
